FAERS Safety Report 21734909 (Version 2)
Quarter: 2022Q4

REPORT INFORMATION
  Report Type: Spontaneous
  Country: US (occurrence: US)
  Receive Date: 20221215
  Receipt Date: 20221220
  Transmission Date: 20230113
  Serious: No
  Sender: FDA-Public Use
  Company Number: US-JNJFOC-20221223737

PATIENT
  Sex: Female

DRUGS (1)
  1. OPSUMIT [Suspect]
     Active Substance: MACITENTAN
     Indication: Product used for unknown indication
     Route: 048
     Dates: start: 20221015

REACTIONS (5)
  - Nasal congestion [Unknown]
  - Sinusitis [Unknown]
  - Throat irritation [Unknown]
  - Respiratory tract congestion [Unknown]
  - Chest pain [Unknown]
